FAERS Safety Report 9162375 (Version 1)
Quarter: 2013Q1

REPORT INFORMATION
  Report Type: Spontaneous
  Country: US (occurrence: None)
  Receive Date: 20130225
  Receipt Date: 20130225
  Transmission Date: 20140127
  Serious: Yes (Hospitalization)
  Sender: FDA-Public Use
  Company Number: ACO_34306_2013

PATIENT
  Age: 53 Year
  Sex: Female

DRUGS (3)
  1. AMPYRA (DALFAMPRIDINE) TABLET, 10MG [Suspect]
  2. HYDROXYZINE HCI (HYDROXYZINE HYDROCHLORIDE) [Concomitant]
  3. OXYBUTYNIN (OXYBUTYNIN HYDROCHLORIDE) [Concomitant]

REACTIONS (1)
  - Staphylococcal infection [None]
